FAERS Safety Report 11415241 (Version 1)
Quarter: 2015Q3

REPORT INFORMATION
  Report Type: Spontaneous
  Country: US (occurrence: US)
  Receive Date: 20150825
  Receipt Date: 20150825
  Transmission Date: 20151125
  Serious: Yes (Death)
  Sender: FDA-Public Use
  Company Number: US-ACTAVIS-2015-17578

PATIENT
  Age: 54 Year
  Sex: Male
  Weight: 136.51 kg

DRUGS (14)
  1. BACLOFEN (WATSON LABORATORIES) [Suspect]
     Active Substance: BACLOFEN
     Indication: PRODUCT USED FOR UNKNOWN INDICATION
     Dosage: 10 MG, FOUR TIMES A DAY
     Route: 048
  2. ZOLPIDEM TARTRATE (WATSON LABORATORIES) [Suspect]
     Active Substance: ZOLPIDEM TARTRATE
     Indication: PRODUCT USED FOR UNKNOWN INDICATION
     Dosage: 10 MG, BEDTIME
     Route: 048
  3. OXYCONTIN [Suspect]
     Active Substance: OXYCODONE HYDROCHLORIDE
     Indication: PAIN
     Dosage: 40 MG, UP TO THREE TIMES A DAY
     Route: 048
  4. OPANA [Suspect]
     Active Substance: OXYMORPHONE HYDROCHLORIDE
     Dosage: 30 MG, TWICE DAILY
  5. LAZANDA [Suspect]
     Active Substance: FENTANYL CITRATE
     Indication: OFF LABEL USE
  6. PAMELOR [Suspect]
     Active Substance: NORTRIPTYLINE HYDROCHLORIDE
     Dosage: 25 MG, BEDTIME
     Route: 048
  7. CAMBIA [Suspect]
     Active Substance: DICLOFENAC POTASSIUM
     Indication: MIGRAINE
     Dosage: 50 MG, 1 UNIT AT THE ONSET OF MIGRAINE
     Route: 048
     Dates: start: 20150519
  8. VALIUM [Suspect]
     Active Substance: DIAZEPAM
     Dosage: UNKNOWN
     Route: 048
  9. FIORICET [Suspect]
     Active Substance: ACETAMINOPHEN\BUTALBITAL\CAFFEINE
     Indication: PRODUCT USED FOR UNKNOWN INDICATION
     Dosage: 40 MG, BID
     Route: 048
  10. LUNESTA [Suspect]
     Active Substance: ESZOPICLONE
     Dosage: 3 MG, BEDTIME
     Route: 048
  11. HYDROCODONE BITARTRATE/ACETAMINOPHEN 10/325 (ACTAVIS LABORATORIES FL) [Suspect]
     Active Substance: ACETAMINOPHEN\HYDROCODONE BITARTRATE
     Indication: PRODUCT USED FOR UNKNOWN INDICATION
     Dosage: 1 TABLET THREE TIMES A DAY
     Route: 048
  12. VALIUM [Suspect]
     Active Substance: DIAZEPAM
     Dosage: INCREASED UP TO 10 MG THREE TIMES A DAY
  13. LAZANDA [Suspect]
     Active Substance: FENTANYL CITRATE
     Indication: PAIN
     Dosage: 400 UG, 2 SQUIRTS IN THE NOSTRIL FOUR TIMES DAILY AS NEEDED
     Route: 045
     Dates: start: 20150515
  14. FENTORA [Suspect]
     Active Substance: FENTANYL CITRATE
     Indication: PAIN
     Dosage: 800 ?G, FOUR TIMES A DAY AS NEEDED
     Route: 002
     Dates: start: 20150515

REACTIONS (1)
  - Completed suicide [Fatal]

NARRATIVE: CASE EVENT DATE: 20150519
